FAERS Safety Report 20966506 (Version 1)
Quarter: 2022Q2

REPORT INFORMATION
  Report Type: Spontaneous
  Country: US (occurrence: None)
  Receive Date: 20220615
  Receipt Date: 20220615
  Transmission Date: 20220720
  Serious: No
  Sender: FDA-Public Use
  Company Number: None

PATIENT
  Age: 69 Year
  Sex: Male
  Weight: 94.5 kg

DRUGS (9)
  1. EVUSHELD [Suspect]
     Active Substance: CILGAVIMAB\TIXAGEVIMAB
     Indication: Immunodeficiency
     Dates: start: 20220527, end: 20220527
  2. ACYCLOVIR [Concomitant]
     Active Substance: ACYCLOVIR
  3. METFORMIN [Concomitant]
     Active Substance: METFORMIN HYDROCHLORIDE
  4. Idhifa (enesidenib) [Concomitant]
  5. VITAMINS [Concomitant]
     Active Substance: VITAMINS
  6. POTASSIUM [Concomitant]
     Active Substance: POTASSIUM
  7. MAGNESIUM [Concomitant]
     Active Substance: MAGNESIUM
  8. VITAMIN B1 [Concomitant]
     Active Substance: THIAMINE HYDROCHLORIDE
  9. FOLIC ACID [Concomitant]
     Active Substance: FOLIC ACID

REACTIONS (4)
  - Headache [None]
  - Fatigue [None]
  - Diarrhoea [None]
  - Cough [None]

NARRATIVE: CASE EVENT DATE: 20220527
